FAERS Safety Report 5347292-2 (Version None)
Quarter: 2007Q2

REPORT INFORMATION
  Report Type: 
  Country: None (occurrence: None)
  Receive Date: 20070509
  Receipt Date: 20061218
  Transmission Date: 20071010
  Serious: No
  Sender: FDA-Public Use
  Company Number: 475846

PATIENT
  Age: 51 Year
  Sex: Male
  Weight: 83.9 kg

DRUGS (6)
  1. FUZEON [Suspect]
     Indication: HIV INFECTION
     Dosage: 90 MG 2 PER DAY SUBCUTANEOUS
     Route: 058
     Dates: start: 20050113
  2. APTIVUS [Concomitant]
  3. NORVIR [Concomitant]
  4. SUSTIVA [Concomitant]
  5. VIREAD [Concomitant]
  6. RESCRIPTOR [Concomitant]

REACTIONS (3)
  - INJECTION SITE ABSCESS [None]
  - INJECTION SITE REACTION [None]
  - SUBCUTANEOUS ABSCESS [None]
